FAERS Safety Report 16373264 (Version 1)
Quarter: 2019Q2

REPORT INFORMATION
  Report Type: Spontaneous
  Country: CA (occurrence: CA)
  Receive Date: 20190530
  Receipt Date: 20190530
  Transmission Date: 20190711
  Serious: Yes (Hospitalization)
  Sender: FDA-Public Use
  Company Number: CA-ACTELION-A-US2019-191056

PATIENT
  Sex: Male
  Weight: 72.56 kg

DRUGS (11)
  1. TADALAFIL. [Concomitant]
     Active Substance: TADALAFIL
  2. TIOTROPIUM [Concomitant]
     Active Substance: TIOTROPIUM
  3. CARVEDILOL. [Concomitant]
     Active Substance: CARVEDILOL
  4. RISPERIDONE. [Concomitant]
     Active Substance: RISPERIDONE
  5. TRACLEER [Suspect]
     Active Substance: BOSENTAN
     Indication: PULMONARY ARTERIAL HYPERTENSION
     Dosage: 125 MG
     Route: 048
     Dates: start: 20170911
  6. OXYGEN. [Concomitant]
     Active Substance: OXYGEN
  7. BUDESONIDE. [Concomitant]
     Active Substance: BUDESONIDE
     Route: 055
  8. FUROSEMIDE. [Concomitant]
     Active Substance: FUROSEMIDE
  9. DALTEPARIN [Concomitant]
     Active Substance: DALTEPARIN
  10. PAROXETINE. [Concomitant]
     Active Substance: PAROXETINE
  11. TRAZODONE [Concomitant]
     Active Substance: TRAZODONE HYDROCHLORIDE

REACTIONS (1)
  - Palliative care [Unknown]
